FAERS Safety Report 6242081-9 (Version None)
Quarter: 2009Q2

REPORT INFORMATION
  Report Type: 
  Country: None (occurrence: None)
  Receive Date: 20090622
  Receipt Date: 20090608
  Transmission Date: 20091009
  Serious: Yes (Hospitalization, Other)
  Sender: FDA-Public Use
  Company Number: ADE2009-0666

PATIENT
  Age: 24 Year
  Sex: Female

DRUGS (2)
  1. CIPROFLAXACIN [Suspect]
     Indication: SINUSITIS
  2. CIPROFLAXACIN [Suspect]
     Indication: URINARY TRACT INFECTION

REACTIONS (3)
  - CONVULSION [None]
  - MYOPATHY [None]
  - RENAL FAILURE ACUTE [None]
